FAERS Safety Report 8877124 (Version 2)
Quarter: 2012Q4

REPORT INFORMATION
  Report Type: 
  Country: US (occurrence: None)
  Receive Date: 20121101
  Receipt Date: 20121109
  Transmission Date: 20130627
  Serious: Yes (Other)
  Sender: FDA-Public Use
  Company Number: None

PATIENT
  Age: 65 Year
  Sex: Female

DRUGS (3)
  1. STEROID [Suspect]
     Dates: start: 20120611, end: 20120611
  2. PHENYLEPHRINE/TROPICAMIDE/CYCLOPENTOLATE COMPOUNDED EYE DROPS [Suspect]
  3. NEVANAC [Concomitant]

REACTIONS (6)
  - Ocular hyperaemia [None]
  - Ocular hyperaemia [None]
  - Eye pain [None]
  - Eye discharge [None]
  - Vision blurred [None]
  - Conjunctivitis viral [None]
